FAERS Safety Report 7867690-2 (Version None)
Quarter: 2011Q4

REPORT INFORMATION
  Report Type: 
  Country: None (occurrence: None)
  Receive Date: 20111028
  Receipt Date: 20111024
  Transmission Date: 20120403
  Serious: Yes (Death, Other)
  Sender: FDA-Public Use
  Company Number: PHHY2011MX94704

PATIENT
  Age: 70 Year
  Sex: Female

DRUGS (1)
  1. EXELON [Suspect]
     Indication: DEMENTIA ALZHEIMER'S TYPE
     Dosage: 4.5 MG, QD
     Route: 062
     Dates: start: 20110701

REACTIONS (4)
  - DEATH [None]
  - PARKINSON'S DISEASE [None]
  - HYPOPHAGIA [None]
  - ARTHRITIS [None]
